FAERS Safety Report 25819990 (Version 1)
Quarter: 2025Q3

REPORT INFORMATION
  Report Type: Spontaneous
  Country: US (occurrence: US)
  Receive Date: 20250918
  Receipt Date: 20250918
  Transmission Date: 20251020
  Serious: Yes (Other)
  Sender: MDD OPERATIONS
  Company Number: US-MDD US Operations-MDD202509-003561

PATIENT
  Age: 60 Year
  Sex: Female
  Weight: 88.9 kg

DRUGS (12)
  1. APOKYN [Suspect]
     Active Substance: APOMORPHINE HYDROCHLORIDE
     Indication: Parkinson^s disease
     Dosage: TWICE A WEEK
  2. VITAMIN B12 [Concomitant]
     Active Substance: CYANOCOBALAMIN
     Dosage: ONCE A MONTH
  3. DEXILANT [Concomitant]
     Active Substance: DEXLANSOPRAZOLE
     Dosage: 1 TABLET TWICE A DAY
  4. LEXAPRO [Concomitant]
     Active Substance: ESCITALOPRAM OXALATE
     Dosage: 10 MG OD (ONCE DAILY)
  5. PROZAC [Concomitant]
     Active Substance: FLUOXETINE HYDROCHLORIDE
     Dosage: 10 MG TWICE A DAY
  6. NEURONTIN [Concomitant]
     Active Substance: GABAPENTIN
     Dosage: 5 CAPSULES IN A DAY (300MG IN MORNING, 100MG IN AFTERNOON, 100MG IN NIGHT)
  7. Methocarbamol/Robaxin [Concomitant]
     Dosage: 500MG THREE TIMES A DAY
  8. RIZATRIPTAN [Concomitant]
     Active Substance: RIZATRIPTAN
  9. TIMOLOL [Concomitant]
     Active Substance: TIMOLOL
  10. TRAMADOL [Concomitant]
     Active Substance: TRAMADOL
     Dosage: 15 MG 3 TIMES A DAY
  11. TRAZODONE [Concomitant]
     Active Substance: TRAZODONE HYDROCHLORIDE
     Dosage: 15 MG ONCE A DAY AT BEDTIME
  12. AMOXICILLIN [Concomitant]
     Active Substance: AMOXICILLIN
     Dosage: 500 MG 2 CAPSULES (1000MG) ONCE A DAY FOR 5 DAYS

REACTIONS (4)
  - Lyme disease [Unknown]
  - Cholelithiasis [Unknown]
  - Pneumonia [Unknown]
  - Arthropod bite [Unknown]

NARRATIVE: CASE EVENT DATE: 20250801
